FAERS Safety Report 4636623-4 (Version None)
Quarter: 2005Q2

REPORT INFORMATION
  Report Type: 
  Country: None (occurrence: None)
  Receive Date: 20050328
  Receipt Date: 20041209
  Transmission Date: 20051028
  Serious: No
  Sender: FDA-Public Use
  Company Number: USA041285773

PATIENT
  Age: 23 Year
  Sex: Female

DRUGS (2)
  1. STRATTERA [Suspect]
     Dosage: 40 MG DAY
     Dates: start: 20041209
  2. MULTI-VITAMIN [Concomitant]

REACTIONS (2)
  - FEELING ABNORMAL [None]
  - STOMACH DISCOMFORT [None]
